FAERS Safety Report 4842443-8 (Version None)
Quarter: 2005Q4

REPORT INFORMATION
  Report Type: 
  Country: None (occurrence: None)
  Receive Date: 20051201
  Receipt Date: 20051123
  Transmission Date: 20060501
  Serious: Yes (Other)
  Sender: FDA-Public Use
  Company Number: US-BRISTOL-MYERS SQUIBB COMPANY-13192927

PATIENT
  Age: 59 Year
  Sex: Male

DRUGS (17)
  1. ERBITUX [Suspect]
     Indication: LUNG NEOPLASM
     Dosage: INITIATED ON 28-SEP-2005.
     Route: 042
     Dates: start: 20050101, end: 20050101
  2. ERBITUX [Suspect]
     Indication: NEOPLASM
     Dosage: INITIATED ON 28-SEP-2005.
     Route: 042
     Dates: start: 20050101, end: 20050101
  3. BENADRYL [Concomitant]
     Indication: PREMEDICATION
     Route: 042
     Dates: start: 20050101
  4. DECADRON [Concomitant]
     Indication: PREMEDICATION
     Route: 042
     Dates: start: 20050101, end: 20050101
  5. KYTRIL [Concomitant]
     Indication: PREMEDICATION
     Route: 042
     Dates: start: 20050101
  6. PEPCID [Concomitant]
     Indication: PREMEDICATION
     Route: 042
     Dates: start: 20050101
  7. TYLENOL [Concomitant]
     Indication: PREMEDICATION
     Route: 048
     Dates: start: 20050101
  8. ASPIRIN [Concomitant]
  9. DEXAMETHASONE [Concomitant]
  10. DOXYCYCLINE [Concomitant]
  11. ENALAPRIL [Concomitant]
  12. METOPROLOL [Concomitant]
  13. MULTI-VITAMIN [Concomitant]
  14. PREVACID [Concomitant]
  15. ASCORBIC ACID [Concomitant]
  16. ZOCOR [Concomitant]
  17. ZYRTEC [Concomitant]

REACTIONS (7)
  - HAEMORRHAGE [None]
  - INFLAMMATION [None]
  - NAIL DISORDER [None]
  - PAIN [None]
  - RASH PUSTULAR [None]
  - SKIN INFECTION [None]
  - SKIN LESION [None]
